FAERS Safety Report 16811174 (Version 8)
Quarter: 2020Q4

REPORT INFORMATION
  Report Type: Spontaneous
  Country: US (occurrence: US)
  Receive Date: 20190916
  Receipt Date: 20201208
  Transmission Date: 20210113
  Serious: Yes (Other)
  Sender: FDA-Public Use
  Company Number: US-PFIZER INC-2019394003

PATIENT
  Age: 37 Year
  Sex: Female
  Weight: 99.79 kg

DRUGS (2)
  1. LYRICA [Suspect]
     Active Substance: PREGABALIN
     Indication: NEPHROPATHY
     Dosage: UNK
     Dates: start: 2012
  2. LYRICA [Suspect]
     Active Substance: PREGABALIN
     Indication: NEUROPATHY PERIPHERAL

REACTIONS (8)
  - Limb injury [Unknown]
  - Hypoaesthesia [Unknown]
  - Anger [Unknown]
  - Malaise [Unknown]
  - Intentional product misuse [Unknown]
  - Pain [Unknown]
  - Weight decreased [Unknown]
  - Foreign body [Unknown]

NARRATIVE: CASE EVENT DATE: 2013
